FAERS Safety Report 4373206-8 (Version None)
Quarter: 2004Q2

REPORT INFORMATION
  Report Type: 
  Country: None (occurrence: None)
  Receive Date: 20040603
  Receipt Date: 20040521
  Transmission Date: 20050107
  Serious: Yes (Other)
  Sender: FDA-Public Use
  Company Number: 2004-BP-04177PF(0)

PATIENT
  Age: 74 Year
  Sex: Male
  Weight: 115.2 kg

DRUGS (19)
  1. SPIRIVA [Suspect]
     Dosage: (18 MCG), IH
     Route: 055
     Dates: start: 20040520
  2. TIKOSYN [Suspect]
     Dosage: 100 MCG (500 MCG,BID) PO
     Route: 048
  3. ACCUPRIL [Concomitant]
  4. ALLEGRA [Concomitant]
  5. ATROVENT [Concomitant]
  6. CARDIZEM [Concomitant]
  7. CEFTIN [Concomitant]
  8. COMBIVENT [Concomitant]
  9. DAYPRO [Concomitant]
  10. ETHMOZINE (MORACIZINE HYDROCHLORIDE) [Concomitant]
  11. FLOVENT [Concomitant]
  12. FLONASE [Concomitant]
  13. K-DUR 10 [Concomitant]
  14. LANOXIN [Concomitant]
  15. NIASPAN [Concomitant]
  16. PRAVACHOL [Concomitant]
  17. SINGULAIR [Concomitant]
  18. SYNTHROID [Concomitant]
  19. ZITHROMAX [Concomitant]

REACTIONS (4)
  - DRUG INTERACTION [None]
  - DYSPNOEA [None]
  - LETHARGY [None]
  - LISTLESS [None]
